FAERS Safety Report 18106820 (Version 2)
Quarter: 2021Q2

REPORT INFORMATION
  Report Type: Spontaneous
  Country: DE (occurrence: DE)
  Receive Date: 20200803
  Receipt Date: 20210601
  Transmission Date: 20210717
  Serious: Yes (Other)
  Sender: FDA-Public Use
  Company Number: NVSC2020DE215401

PATIENT
  Sex: Male

DRUGS (3)
  1. FILGRASTIM HEXAL 30 MU/0.5 ML SOLUTION FOR INJECTION OR INFUSION IN PR [Suspect]
     Active Substance: FILGRASTIM
     Indication: HAEMATOPOIETIC STEM CELL MOBILISATION
     Dosage: UNK
     Route: 065
     Dates: start: 2019, end: 2019
  2. FILGRASTIM HEXAL 30 MU/0.5 ML SOLUTION FOR INJECTION OR INFUSION IN PR [Suspect]
     Active Substance: FILGRASTIM
     Dosage: UNK, (1?0?1)
     Route: 065
  3. FILGRASTIM HEXAL 30 MU/0.5 ML SOLUTION FOR INJECTION OR INFUSION IN PR [Suspect]
     Active Substance: FILGRASTIM
     Dosage: UNK, (1?0?1)
     Route: 065

REACTIONS (2)
  - Product use in unapproved indication [Unknown]
  - Testis cancer [Unknown]

NARRATIVE: CASE EVENT DATE: 202005
